FAERS Safety Report 4490919-8 (Version None)
Quarter: 2004Q4

REPORT INFORMATION
  Report Type: 
  Country: None (occurrence: None)
  Receive Date: 20041027
  Receipt Date: 20041021
  Transmission Date: 20050328
  Serious: Yes (Death)
  Sender: FDA-Public Use
  Company Number: USA-2004-0016551

PATIENT
  Age: 70 Year
  Sex: Female
  Weight: 76.2 kg

DRUGS (5)
  1. MS CONTIN [Suspect]
     Indication: PAIN
     Dosage: 15 MG Q12H
     Dates: start: 20040729, end: 20040817
  2. NORCO [Suspect]
     Indication: PAIN
     Dosage: Q4H
  3. ATENOLOL [Concomitant]
  4. FOSAMAX [Concomitant]
  5. FLEXERIL [Concomitant]

REACTIONS (8)
  - CONSTIPATION [None]
  - DRUG INEFFECTIVE [None]
  - FAECALOMA [None]
  - HYPERTENSION [None]
  - INTESTINAL OBSTRUCTION [None]
  - PROCEDURAL COMPLICATION [None]
  - PULMONARY EMBOLISM [None]
  - THROMBOSIS [None]
